FAERS Safety Report 14544966 (Version 1)
Quarter: 2018Q1

REPORT INFORMATION
  Report Type: Spontaneous
  Country: US (occurrence: US)
  Receive Date: 20180216
  Receipt Date: 20180216
  Transmission Date: 20180509
  Serious: Yes (Disabling, Other)
  Sender: FDA-Public Use
  Company Number: None

PATIENT
  Age: 62 Year
  Sex: Female
  Weight: 57.6 kg

DRUGS (6)
  1. ROBITUSSIN MAXIMUM STRENGTH NIGHTTIME COUGH DM [Suspect]
     Active Substance: DEXTROMETHORPHAN HYDROBROMIDE\DOXYLAMINE SUCCINATE
     Indication: RESPIRATORY TRACT CONGESTION
     Dosage: ?          QUANTITY:20 MIL;?
     Route: 048
     Dates: start: 20171126, end: 20171206
  2. ROBITUSSIN MAXIMUM STRENGTH NIGHTTIME COUGH DM [Suspect]
     Active Substance: DEXTROMETHORPHAN HYDROBROMIDE\DOXYLAMINE SUCCINATE
     Indication: COUGH
     Dosage: ?          QUANTITY:20 MIL;?
     Route: 048
     Dates: start: 20171126, end: 20171206
  3. ROBITUSSIN 12 HOUR COUGH RELIEF [Suspect]
     Active Substance: DEXTROMETHORPHAN HYDROBROMIDE
     Indication: INFLUENZA
     Dosage: ?          QUANTITY:10 10 MIL;?
     Route: 048
     Dates: start: 20171126, end: 20171206
  4. ROBITUSSIN 12 HOUR COUGH RELIEF [Suspect]
     Active Substance: DEXTROMETHORPHAN HYDROBROMIDE
     Indication: RESPIRATORY TRACT CONGESTION
     Dosage: ?          QUANTITY:10 10 MIL;?
     Route: 048
     Dates: start: 20171126, end: 20171206
  5. ROBITUSSIN 12 HOUR COUGH RELIEF [Suspect]
     Active Substance: DEXTROMETHORPHAN HYDROBROMIDE
     Indication: COUGH
     Dosage: ?          QUANTITY:10 10 MIL;?
     Route: 048
     Dates: start: 20171126, end: 20171206
  6. 50+ MULTIVITAMIN [Concomitant]

REACTIONS (2)
  - Cholelithiasis [None]
  - Constipation [None]

NARRATIVE: CASE EVENT DATE: 20171220
